FAERS Safety Report 6203560-3 (Version None)
Quarter: 2009Q2

REPORT INFORMATION
  Report Type: 
  Country: None (occurrence: None)
  Receive Date: 20090522
  Receipt Date: 20090522
  Transmission Date: 20091009
  Serious: No
  Sender: FDA-Public Use
  Company Number: None

PATIENT
  Age: 41 Year
  Sex: Male
  Weight: 86.637 kg

DRUGS (1)
  1. LEXAPRO [Suspect]
     Dosage: 10 MG -1 PILL- DAILY PO
     Route: 048
     Dates: start: 20090519

REACTIONS (8)
  - BRUXISM [None]
  - EUPHORIC MOOD [None]
  - EYE ROLLING [None]
  - HEADACHE [None]
  - INSOMNIA [None]
  - JAW DISORDER [None]
  - MUSCLE TWITCHING [None]
  - TIC [None]
